FAERS Safety Report 7341421-7 (Version None)
Quarter: 2011Q1

REPORT INFORMATION
  Report Type: 
  Country: None (occurrence: None)
  Receive Date: 20110309
  Receipt Date: 20110301
  Transmission Date: 20110831
  Serious: Yes (Hospitalization, Disabling, Other)
  Sender: FDA-Public Use
  Company Number: US-MERCK-0903USA01377

PATIENT
  Age: 40 Year
  Sex: Female

DRUGS (7)
  1. VITAMIN D (UNSPECIFIED) [Concomitant]
     Route: 065
  2. FOSAMAX [Suspect]
     Indication: OSTEOPOROSIS
     Route: 048
     Dates: start: 19950101, end: 20020401
  3. FOSAMAX [Suspect]
     Route: 048
     Dates: start: 20020101, end: 20070601
  4. CALCIUM (UNSPECIFIED) [Concomitant]
     Route: 048
  5. PREMARIN [Concomitant]
     Route: 048
     Dates: start: 19830101
  6. DIDRONEL [Concomitant]
     Route: 048
  7. REMIFEMIN [Concomitant]
     Route: 065

REACTIONS (34)
  - JAW DISORDER [None]
  - DRUG HYPERSENSITIVITY [None]
  - GASTROINTESTINAL DISORDER [None]
  - FATIGUE [None]
  - INFECTION [None]
  - BLOOD URINE PRESENT [None]
  - GASTRITIS [None]
  - EXOSTOSIS [None]
  - SOFT TISSUE DISORDER [None]
  - OSTEOLYSIS [None]
  - TENSION [None]
  - MOOD ALTERED [None]
  - TOOTH DISORDER [None]
  - ORAL TORUS [None]
  - BENIGN LYMPH NODE NEOPLASM [None]
  - HOT FLUSH [None]
  - VERTIGO [None]
  - BREAST PAIN [None]
  - OSTEOPENIA [None]
  - TOOTH INJURY [None]
  - OSTEOMYELITIS [None]
  - INTESTINAL OBSTRUCTION [None]
  - ORAL PAIN [None]
  - NECK MASS [None]
  - HAEMORRHOIDS [None]
  - IMPAIRED HEALING [None]
  - OSTEONECROSIS OF JAW [None]
  - MELANOSIS COLI [None]
  - LOW TURNOVER OSTEOPATHY [None]
  - VULVOVAGINAL DRYNESS [None]
  - URINARY TRACT INFECTION [None]
  - BRUXISM [None]
  - GOUT [None]
  - CYST [None]
